FAERS Safety Report 17689311 (Version 1)
Quarter: 2020Q2

REPORT INFORMATION
  Report Type: Spontaneous
  Country: US (occurrence: US)
  Receive Date: 20200421
  Receipt Date: 20200421
  Transmission Date: 20200714
  Serious: No
  Sender: FDA-Public Use
  Company Number: US-INSMED, INC.-US-INS-20-00017

PATIENT
  Sex: Female

DRUGS (3)
  1. LAMIRA NEBULIZER SYSTEM [Suspect]
     Active Substance: DEVICE
  2. ARIKAYCE [Suspect]
     Active Substance: AMIKACIN
     Indication: MYCOBACTERIUM AVIUM COMPLEX INFECTION
     Route: 055
     Dates: start: 201911
  3. ARIKAYCE [Suspect]
     Active Substance: AMIKACIN
     Route: 055
     Dates: end: 2020

REACTIONS (3)
  - Aphonia [Unknown]
  - Dysphonia [Recovering/Resolving]
  - Malaise [Recovering/Resolving]

NARRATIVE: CASE EVENT DATE: 2019
